FAERS Safety Report 8172922-X (Version None)
Quarter: 2012Q1

REPORT INFORMATION
  Report Type: 
  Country: None (occurrence: None)
  Receive Date: 20120229
  Receipt Date: 20120227
  Transmission Date: 20120608
  Serious: Yes (Other)
  Sender: FDA-Public Use
  Company Number: BR-ABBOTT-12P-020-0909552-00

PATIENT
  Sex: Male

DRUGS (2)
  1. HUMIRA [Suspect]
     Indication: RHEUMATOID ARTHRITIS
     Dates: start: 20081114
  2. HUMIRA [Suspect]

REACTIONS (1)
  - INGUINAL HERNIA [None]
